FAERS Safety Report 5569648-5 (Version None)
Quarter: 2007Q4

REPORT INFORMATION
  Report Type: 
  Country: None (occurrence: None)
  Receive Date: 20071220
  Receipt Date: 20071217
  Transmission Date: 20080405
  Serious: Yes (Death, Hospitalization)
  Sender: FDA-Public Use
  Company Number: A0699822A

PATIENT
  Age: 62 Year
  Sex: Male
  Weight: 70 kg

DRUGS (4)
  1. SERETIDE [Suspect]
     Indication: ASTHMA
     Dates: start: 20071029, end: 20071109
  2. DIGOXIN [Concomitant]
     Dates: start: 19990101, end: 20071119
  3. CAPTOPRIL [Concomitant]
     Dates: start: 19990101, end: 20071119
  4. HYDROCHLOROTHIAZIDE [Concomitant]
     Dates: start: 20050101, end: 20071119

REACTIONS (3)
  - DEATH [None]
  - DRUG INEFFECTIVE [None]
  - DYSPNOEA [None]
